FAERS Safety Report 6047889-0 (Version None)
Quarter: 2009Q1

REPORT INFORMATION
  Report Type: 
  Country: None (occurrence: None)
  Receive Date: 20090123
  Receipt Date: 20090121
  Transmission Date: 20090719
  Serious: No
  Sender: FDA-Public Use
  Company Number: US-ASTRAZENECA-2006UW08482

PATIENT
  Age: 605 Month
  Sex: Male

DRUGS (2)
  1. SEROQUEL [Suspect]
     Indication: DEPRESSION
     Dosage: 100-200MG/DAY
     Route: 048
     Dates: start: 20070101
  2. SEROQUEL [Suspect]
     Indication: SLEEP DISORDER
     Dosage: 100-200MG/DAY
     Route: 048
     Dates: start: 20070101

REACTIONS (1)
  - DIABETES MELLITUS [None]
